FAERS Safety Report 9208293 (Version 1)
Quarter: 2013Q2

REPORT INFORMATION
  Report Type: Spontaneous
  Country: US (occurrence: US)
  Receive Date: 20130403
  Receipt Date: 20130403
  Transmission Date: 20140414
  Serious: Yes (Congenital Anomaly)
  Sender: FDA-Public Use
  Company Number: US-FRI-1000043880

PATIENT
  Age: 0 Year
  Sex: 0

DRUGS (1)
  1. LEXAPRO [Suspect]
     Route: 064
     Dates: end: 20090617

REACTIONS (1)
  - Diaphragmatic hernia [Unknown]
